FAERS Safety Report 23130983 (Version 2)
Quarter: 2023Q4

REPORT INFORMATION
  Report Type: Spontaneous
  Country: GB (occurrence: GB)
  Receive Date: 20231031
  Receipt Date: 20231220
  Transmission Date: 20240110
  Serious: Yes (Other)
  Sender: FDA-Public Use
  Company Number: CA-BRISTOL-MYERS SQUIBB COMPANY-BMS-2019-093401

PATIENT
  Age: 50 Year
  Sex: Female

DRUGS (5)
  1. ABATACEPT [Suspect]
     Active Substance: ABATACEPT
     Indication: Rheumatoid arthritis
     Dosage: 125 MG, QW, DELIVERY START DATE 16 NOV 2020, 4 PRE-FILLED DISPOSABLE INJECTION
     Route: 058
  2. ABATACEPT [Suspect]
     Active Substance: ABATACEPT
     Dosage: 125 MG, QW
     Route: 065
  3. METHOTREXATE [Suspect]
     Active Substance: METHOTREXATE
     Indication: Product used for unknown indication
     Dosage: UNK
     Route: 065
  4. METHOTREXATE [Suspect]
     Active Substance: METHOTREXATE
     Dosage: UNK; ;
     Route: 065
  5. METHOTREXATE [Suspect]
     Active Substance: METHOTREXATE
     Dosage: UNK; ;
     Route: 065

REACTIONS (11)
  - Lower respiratory tract infection [Unknown]
  - Malaise [Unknown]
  - Infection [Recovering/Resolving]
  - Gastrooesophageal reflux disease [Unknown]
  - Hypotension [Unknown]
  - Cough [Recovered/Resolved]
  - Rheumatoid arthritis [Unknown]
  - Localised infection [Unknown]
  - Injection site pain [Not Recovered/Not Resolved]
  - Mass [Not Recovered/Not Resolved]
  - Tooth disorder [Not Recovered/Not Resolved]

NARRATIVE: CASE EVENT DATE: 20200223
